FAERS Safety Report 25523568 (Version 1)
Quarter: 2025Q3

REPORT INFORMATION
  Report Type: Spontaneous
  Country: CN (occurrence: CN)
  Receive Date: 20250707
  Receipt Date: 20250707
  Transmission Date: 20251021
  Serious: Yes (Other)
  Sender: ENDO
  Company Number: CN-ENDO USA, INC.-2025-001515

PATIENT
  Age: 35 Year
  Sex: Female
  Weight: 78.2 kg

DRUGS (3)
  1. ETOMIDATE [Suspect]
     Active Substance: ETOMIDATE
     Indication: Substance use
     Dates: start: 202306
  2. PROPOXATE [Suspect]
     Active Substance: PROPOXATE
     Indication: Substance use
     Dates: start: 202306
  3. ISOPROPOXATE [Suspect]
     Active Substance: ISOPROPOXATE
     Indication: Substance use
     Dates: start: 202306

REACTIONS (6)
  - Drug abuse [Not Recovered/Not Resolved]
  - Amenorrhoea [Not Recovered/Not Resolved]
  - Hyperandrogenism [Not Recovered/Not Resolved]
  - Hyperplasia adrenal [Not Recovered/Not Resolved]
  - Adrenal suppression [Not Recovered/Not Resolved]
  - Hypertension [Not Recovered/Not Resolved]

NARRATIVE: CASE EVENT DATE: 20230101
